FAERS Safety Report 7130198-6 (Version None)
Quarter: 2010Q4

REPORT INFORMATION
  Report Type: 
  Country: None (occurrence: None)
  Receive Date: 20101116
  Receipt Date: 20101101
  Transmission Date: 20110411
  Serious: Yes (Hospitalization)
  Sender: FDA-Public Use
  Company Number: DSJ-2010-04394

PATIENT
  Age: 75 Year
  Sex: Male
  Weight: 53.6 kg

DRUGS (2)
  1. OLMETEC (OLMESARTAN MEDOXOMIL) (TABLET) (OLMESARTAN MEDOXOMIL) [Suspect]
     Indication: ESSENTIAL HYPERTENSION
     Dosage: 10 MG, PER ORAL
     Route: 048
     Dates: start: 20100310
  2. AMLODIN OD (AMLODIPINE BESILATE) (AMLODIPINE BESILATE) [Suspect]

REACTIONS (1)
  - THROMBOTIC CEREBRAL INFARCTION [None]
